FAERS Safety Report 5370746-X (Version None)
Quarter: 2007Q2

REPORT INFORMATION
  Report Type: 
  Country: None (occurrence: None)
  Receive Date: 20070618
  Receipt Date: 20060915
  Transmission Date: 20071010
  Serious: Yes (Hospitalization)
  Sender: FDA-Public Use
  Company Number: PHEH2006US11744

PATIENT
  Age: 28 Year
  Sex: Female
  Weight: 70.3 kg

DRUGS (9)
  1. GLEEVEC [Suspect]
     Indication: CHRONIC MYELOID LEUKAEMIA
     Dosage: 400 MG, QD, ORAL; 300 MG, QD, ORAL; 400 MG, QD, ORAL; 300 MG, QD, ORAL
     Route: 048
     Dates: end: 20060227
  2. GLEEVEC [Suspect]
     Indication: CHRONIC MYELOID LEUKAEMIA
     Dosage: 400 MG, QD, ORAL; 300 MG, QD, ORAL; 400 MG, QD, ORAL; 300 MG, QD, ORAL
     Route: 048
     Dates: start: 20060101, end: 20060714
  3. GLEEVEC [Suspect]
     Indication: CHRONIC MYELOID LEUKAEMIA
     Dosage: 400 MG, QD, ORAL; 300 MG, QD, ORAL; 400 MG, QD, ORAL; 300 MG, QD, ORAL
     Route: 048
     Dates: start: 20060714, end: 20060801
  4. GLEEVEC [Suspect]
     Indication: CHRONIC MYELOID LEUKAEMIA
     Dosage: 400 MG, QD, ORAL; 300 MG, QD, ORAL; 400 MG, QD, ORAL; 300 MG, QD, ORAL
     Route: 048
     Dates: start: 20050801
  5. GLEEVEC [Suspect]
     Indication: CHRONIC MYELOID LEUKAEMIA
     Dosage: 400 MG, QD, ORAL; 300 MG, QD, ORAL; 400 MG, QD, ORAL; 300 MG, QD, ORAL
     Route: 048
     Dates: start: 20060227
  6. SYNTHROID [Concomitant]
  7. HYDREA [Concomitant]
  8. ALLOPURINOL [Concomitant]
  9. ACYCLOVIR [Concomitant]

REACTIONS (5)
  - ASPARTATE AMINOTRANSFERASE INCREASED [None]
  - BLOOD ALKALINE PHOSPHATASE INCREASED [None]
  - BLOOD BILIRUBIN INCREASED [None]
  - BLOOD LACTATE DEHYDROGENASE INCREASED [None]
  - LIVER FUNCTION TEST ABNORMAL [None]
